FAERS Safety Report 21868874 (Version 3)
Quarter: 2023Q1

REPORT INFORMATION
  Report Type: Spontaneous
  Country: DE (occurrence: DE)
  Receive Date: 20230117
  Receipt Date: 20230209
  Transmission Date: 20230417
  Serious: Yes (Disabling, Other)
  Sender: FDA-Public Use
  Company Number: DE-CELLTRION INC.-2023DE000458

PATIENT

DRUGS (7)
  1. INFLIXIMAB [Suspect]
     Active Substance: INFLIXIMAB
     Indication: Crohn^s disease
     Dosage: WEEK 0,2,6 ALREADY RECEIVED- FROM NOW ON 8-WEEKLY
     Route: 042
     Dates: start: 20221121
  2. INFLIXIMAB [Suspect]
     Active Substance: INFLIXIMAB
     Dosage: WEEK 0,2,6 ALREADY RECEIVED- FROM NOW ON 8-WEEKLY
     Route: 042
     Dates: start: 20221205
  3. INFLIXIMAB [Suspect]
     Active Substance: INFLIXIMAB
     Dosage: WEEK 0,2,6 ALREADY RECEIVED- FROM NOW ON 8-WEEKLY
     Route: 042
     Dates: start: 20230102
  4. CORTISONE [Suspect]
     Active Substance: CORTISONE
     Indication: Product used for unknown indication
     Dosage: EVERY 6 WEEKS IN SEPTEMBER/OCTOBER
  5. PREDNISOLONE [Suspect]
     Active Substance: PREDNISOLONE
     Indication: Product used for unknown indication
     Dosage: 60 MG - 40 MG - 20 MG - 15 MG - 10 MG AND 5 MG EACH TO BE DISCONTINUED
  6. CANDESARTAN [Concomitant]
     Active Substance: CANDESARTAN
     Indication: Cardiac failure
     Dosage: SINCE 12 YEARS
  7. AMLODIPINE BESYLATE [Concomitant]
     Active Substance: AMLODIPINE BESYLATE
     Indication: Cardiac failure
     Dosage: SINCE 12 YEARS

REACTIONS (2)
  - Muscular weakness [Not Recovered/Not Resolved]
  - Arthralgia [Not Recovered/Not Resolved]
